FAERS Safety Report 18515923 (Version 1)
Quarter: 2020Q4

REPORT INFORMATION
  Report Type: Spontaneous
  Country: DE (occurrence: DE)
  Receive Date: 20201118
  Receipt Date: 20201118
  Transmission Date: 20210114
  Serious: Yes (Congenital Anomaly)
  Sender: FDA-Public Use
  Company Number: DE-JNJFOC-20201111361

PATIENT
  Age: 1 Day
  Sex: Female
  Weight: 3.94 kg

DRUGS (5)
  1. VERMOX [Suspect]
     Active Substance: MEBENDAZOLE
     Indication: ENTEROBIASIS
     Dosage: 100 [MG/D ]/ GW 5 5/7-6 0/7 AND GW 7 5/7-8 07/. IN TOTAL FOR 6 DAYS.
     Route: 064
     Dates: start: 20191001, end: 20191017
  2. MOLEVAC [Concomitant]
     Active Substance: PYRVINIUM
     Indication: ENTEROBIASIS
     Dosage: 300 [MG/D]?0.6. - 0.6. GESTATIONAL WEEK
     Route: 064
     Dates: start: 20190828, end: 20190828
  3. MONURIL 3000 [Suspect]
     Active Substance: FOSFOMYCIN TROMETHAMINE
     Indication: URINARY TRACT INFECTION
     Dosage: 3000 [MG/D]
     Route: 064
     Dates: start: 20191016, end: 20191016
  4. INFLUENZA VACCINE [Concomitant]
     Active Substance: INFLUENZA VIRUS VACCINE
     Indication: IMMUNISATION
     Route: 064
     Dates: start: 20191209, end: 20191209
  5. UTROGEST [Concomitant]
     Active Substance: PROGESTERONE
     Indication: HAEMORRHAGE IN PREGNANCY
     Dosage: 300 [MG/D ]
     Route: 064
     Dates: start: 20191025, end: 20191108

REACTIONS (3)
  - Patent ductus arteriosus [Recovered/Resolved]
  - Foetal exposure during pregnancy [Unknown]
  - Atrioventricular septal defect [Unknown]

NARRATIVE: CASE EVENT DATE: 20200529
